FAERS Safety Report 16429719 (Version 3)
Quarter: 2019Q2

REPORT INFORMATION
  Report Type: Report from Study
  Country: US (occurrence: US)
  Receive Date: 20190614
  Receipt Date: 20190628
  Transmission Date: 20190711
  Serious: Yes (Hospitalization)
  Sender: FDA-Public Use
  Company Number: US-ASTRAZENECA-2019SE78884

PATIENT
  Sex: Female

DRUGS (3)
  1. LYNPARZA [Suspect]
     Active Substance: OLAPARIB
     Indication: BREAST CANCER FEMALE
     Route: 048
     Dates: start: 20190517
  2. LISINOPRIL. [Suspect]
     Active Substance: LISINOPRIL
     Route: 048
  3. LYNPARZA [Suspect]
     Active Substance: OLAPARIB
     Indication: BREAST CANCER FEMALE
     Route: 048

REACTIONS (16)
  - Platelet count decreased [Unknown]
  - Dysphagia [Unknown]
  - Blood potassium decreased [Unknown]
  - Dysgeusia [Unknown]
  - Pneumonia [Unknown]
  - Rhinovirus infection [Unknown]
  - Malaise [Unknown]
  - Pyrexia [Unknown]
  - Full blood count decreased [Unknown]
  - Chills [Unknown]
  - Headache [Unknown]
  - Drug hypersensitivity [Unknown]
  - White blood cell count decreased [Unknown]
  - Epistaxis [Unknown]
  - Oropharyngeal pain [Unknown]
  - Laboratory test abnormal [Unknown]
